FAERS Safety Report 5194001-6 (Version None)
Quarter: 2006Q4

REPORT INFORMATION
  Report Type: 
  Country: None (occurrence: None)
  Receive Date: 20061228
  Receipt Date: 20061016
  Transmission Date: 20070319
  Serious: No
  Sender: FDA-Public Use
  Company Number: US-GLAXOSMITHKLINE-A0623704A

PATIENT
  Age: 69 Year
  Sex: Male

DRUGS (5)
  1. FLOVENT [Suspect]
     Indication: ASTHMA
     Route: 055
  2. SINGULAIR [Concomitant]
  3. AVAPRO [Concomitant]
  4. LIPITOR [Concomitant]
  5. NEXIUM [Concomitant]

REACTIONS (2)
  - CHEST DISCOMFORT [None]
  - DYSPHONIA [None]
